FAERS Safety Report 24338965 (Version 1)
Quarter: 2024Q3

REPORT INFORMATION
  Report Type: Spontaneous
  Country: JP (occurrence: JP)
  Receive Date: 20240919
  Receipt Date: 20240919
  Transmission Date: 20241017
  Serious: Yes (Other)
  Sender: BOTANIX PHARMACEUTICALS
  Company Number: JP-BOTANIX PHARMACEUTICALS-2024BOT00002

PATIENT
  Age: 18 Year
  Sex: Female

DRUGS (2)
  1. SOFPIRONIUM BROMIDE [Suspect]
     Active Substance: SOFPIRONIUM BROMIDE
     Indication: Hyperhidrosis
     Dosage: UNK, 1X/DAY (PER 24 HOURS)
     Route: 061
     Dates: start: 20240701, end: 20240706
  2. SOFPIRONIUM BROMIDE [Suspect]
     Active Substance: SOFPIRONIUM BROMIDE
     Dosage: UNK
     Route: 061
     Dates: start: 20240707, end: 20240710

REACTIONS (3)
  - Photophobia [Recovering/Resolving]
  - Hot flush [Recovering/Resolving]
  - Application site irritation [Recovering/Resolving]

NARRATIVE: CASE EVENT DATE: 20240701
